FAERS Safety Report 8021040-X (Version None)
Quarter: 2011Q4

REPORT INFORMATION
  Report Type: 
  Country: None (occurrence: None)
  Receive Date: 20111228
  Receipt Date: 20111215
  Transmission Date: 20120403
  Serious: Yes (Hospitalization, Other)
  Sender: FDA-Public Use
  Company Number: 215560

PATIENT
  Age: 51 Year
  Sex: Male
  Weight: 80 kg

DRUGS (2)
  1. INNOHEP [Suspect]
     Indication: LIGAMENT SPRAIN
     Dosage: 3500 IU, SUBCUTANEOUS
     Route: 058
     Dates: start: 20110812
  2. INNOHEP [Suspect]
     Indication: JOINT STABILISATION
     Dosage: 3500 IU, SUBCUTANEOUS
     Route: 058
     Dates: start: 20110812

REACTIONS (1)
  - DEEP VEIN THROMBOSIS [None]
